FAERS Safety Report 21740393 (Version 1)
Quarter: 2022Q4

REPORT INFORMATION
  Report Type: Spontaneous
  Country: BR (occurrence: BR)
  Receive Date: 20221216
  Receipt Date: 20221216
  Transmission Date: 20230112
  Serious: Yes (Other)
  Sender: FDA-Public Use
  Company Number: BR-BAYER-2022A169071

PATIENT
  Age: 65 Year
  Sex: Female
  Weight: 36 kg

DRUGS (1)
  1. NEXAVAR [Suspect]
     Active Substance: SORAFENIB
     Dosage: 800 MG, QD
     Dates: start: 20221117

REACTIONS (6)
  - Lung perforation [None]
  - Urinary tract infection [None]
  - Pyrexia [None]
  - Adverse event [None]
  - Decreased appetite [Not Recovered/Not Resolved]
  - Weight decreased [Not Recovered/Not Resolved]
